FAERS Safety Report 24466727 (Version 1)
Quarter: 2024Q4

REPORT INFORMATION
  Report Type: Report from Study
  Country: US (occurrence: US)
  Receive Date: 20241018
  Receipt Date: 20241018
  Transmission Date: 20250114
  Serious: No
  Sender: ROCHE
  Company Number: US-ROCHE-3550487

PATIENT
  Age: 31 Year
  Sex: Female
  Weight: 53.1 kg

DRUGS (14)
  1. XOLAIR [Suspect]
     Active Substance: OMALIZUMAB
     Indication: Idiopathic urticaria
     Route: 058
  2. XOLAIR [Suspect]
     Active Substance: OMALIZUMAB
  3. CETIRIZINE HYDROCHLORIDE [Concomitant]
     Active Substance: CETIRIZINE HYDROCHLORIDE
  4. BENADRYL [Concomitant]
     Active Substance: DIPHENHYDRAMINE HYDROCHLORIDE
  5. DULOXETINE [Concomitant]
     Active Substance: DULOXETINE
  6. FAMOTIDINE [Concomitant]
     Active Substance: FAMOTIDINE
  7. LEVSIN [Concomitant]
     Active Substance: HYOSCYAMINE SULFATE
  8. LORATADINE [Concomitant]
     Active Substance: LORATADINE
  9. PROMETHAZINE [Concomitant]
     Active Substance: PROMETHAZINE HYDROCHLORIDE
  10. SIMETHICONE (DIMETHICONE) [Concomitant]
     Active Substance: DIMETHICONE
  11. ZOFRAN [Concomitant]
     Active Substance: ONDANSETRON HYDROCHLORIDE
  12. LINZESS [Concomitant]
     Active Substance: LINACLOTIDE
  13. TAPENTADOL [Concomitant]
     Active Substance: TAPENTADOL
  14. CARVEDILOL [Concomitant]
     Active Substance: CARVEDILOL

REACTIONS (2)
  - Off label use [Unknown]
  - No adverse event [Unknown]
